FAERS Safety Report 5632151-8 (Version None)
Quarter: 2008Q1

REPORT INFORMATION
  Report Type: 
  Country: None (occurrence: None)
  Receive Date: 20080220
  Receipt Date: 20080215
  Transmission Date: 20080703
  Serious: Yes (Life-Threatening)
  Sender: FDA-Public Use
  Company Number: GB-MERCK-0802GBR00063

PATIENT
  Age: 60 Year
  Sex: Female
  Weight: 48 kg

DRUGS (3)
  1. FOSAMAX [Suspect]
     Indication: OSTEOPOROSIS
     Route: 048
     Dates: start: 20071119, end: 20080114
  2. PANCREATIN [Concomitant]
     Indication: BENIGN PANCREATIC NEOPLASM
     Route: 048
  3. URSODIOL [Concomitant]
     Route: 048

REACTIONS (3)
  - CHOLANGITIS [None]
  - HYPONATRAEMIA [None]
  - PYREXIA [None]
